FAERS Safety Report 9582691 (Version 2)
Quarter: 2014Q1

REPORT INFORMATION
  Report Type: Spontaneous
  Country: US (occurrence: US)
  Receive Date: 20131002
  Receipt Date: 20140228
  Transmission Date: 20141002
  Serious: No
  Sender: FDA-Public Use
  Company Number: US-AMGEN-USASP2013042273

PATIENT
  Age: 82 Year
  Sex: Female
  Weight: 53.51 kg

DRUGS (12)
  1. ENBREL [Suspect]
     Indication: RHEUMATOID ARTHRITIS
     Dosage: 50 MG, EVERY WEEK
     Route: 058
     Dates: start: 201212
  2. PANTOPRAZOLE [Concomitant]
     Dosage: 20 MG, UNK
  3. RESTASIS [Concomitant]
     Dosage: EMU 0.05 %, UNK
  4. FLUTICASONE [Concomitant]
     Dosage: SPR 50 MUG, UNK
  5. RECLAST [Concomitant]
     Dosage: 5/100ML, UNK
  6. LEVOTHYROXIN [Concomitant]
     Dosage: 50 MUG, UNK
  7. FELODIPINE [Concomitant]
     Dosage: 5 MG, UNK ER
  8. MULTIVITAMINS, PLAIN [Concomitant]
     Dosage: UNK
  9. TYLENOL                            /00020001/ [Concomitant]
     Dosage: 500 MG, UNK
  10. VITAMIN D                          /00107901/ [Concomitant]
     Dosage: 400 UNIT, UNK
  11. FISH OIL [Concomitant]
     Dosage: UNK
  12. MAGNESIUM [Concomitant]
     Dosage: 200 MG, UNK

REACTIONS (11)
  - Drug ineffective [Unknown]
  - Condition aggravated [Unknown]
  - Local swelling [Unknown]
  - Nausea [Unknown]
  - Musculoskeletal pain [Unknown]
  - Fatigue [Unknown]
  - Ear disorder [Unknown]
  - Nasal congestion [Unknown]
  - Back pain [Unknown]
  - Arthralgia [Unknown]
  - Musculoskeletal stiffness [Unknown]
